FAERS Safety Report 21879691 (Version 1)
Quarter: 2023Q1

REPORT INFORMATION
  Report Type: Spontaneous
  Country: US (occurrence: US)
  Receive Date: 20230118
  Receipt Date: 20230118
  Transmission Date: 20230418
  Serious: No
  Sender: FDA-Public Use
  Company Number: US-PERRIGO-22US003683

PATIENT
  Sex: Female

DRUGS (1)
  1. IBUPROFEN [Suspect]
     Active Substance: IBUPROFEN
     Indication: Teething
     Dosage: UNKNOWN, SINGLE AT HS
     Route: 048
     Dates: start: 20220303, end: 20220303

REACTIONS (3)
  - Diarrhoea [Unknown]
  - Insomnia [Unknown]
  - Infant irritability [Unknown]

NARRATIVE: CASE EVENT DATE: 20220303
